FAERS Safety Report 9136475 (Version 1)
Quarter: 2013Q1

REPORT INFORMATION
  Report Type: Spontaneous
  Country: US (occurrence: US)
  Receive Date: 20130219
  Receipt Date: 20130219
  Transmission Date: 20140127
  Serious: No
  Sender: FDA-Public Use
  Company Number: US-BRISTOL-MYERS SQUIBB COMPANY-16839748

PATIENT
  Age: 75 Year
  Sex: Female
  Weight: 66.21 kg

DRUGS (4)
  1. ORENCIA [Suspect]
     Indication: RHEUMATOID ARTHRITIS
     Dosage: NO OF INFUSIONS:3
     Route: 042
  2. LIPITOR [Concomitant]
  3. PREDNISONE [Concomitant]
  4. ADVIL [Concomitant]

REACTIONS (1)
  - Drug ineffective [Unknown]
